FAERS Safety Report 6279459-3 (Version None)
Quarter: 2009Q3

REPORT INFORMATION
  Report Type: 
  Country: None (occurrence: None)
  Receive Date: 20090723
  Receipt Date: 20090715
  Transmission Date: 20100115
  Serious: Yes (Other)
  Sender: FDA-Public Use
  Company Number: B0585002A

PATIENT
  Sex: Female

DRUGS (1)
  1. ALLI [Suspect]
     Dosage: 180MG PER DAY
     Route: 065
     Dates: start: 20090516, end: 20090520

REACTIONS (4)
  - DYSPNOEA [None]
  - SENSE OF OPPRESSION [None]
  - TACHYCARDIA [None]
  - VOMITING [None]
